FAERS Safety Report 19729037 (Version 1)
Quarter: 2021Q3

REPORT INFORMATION
  Report Type: Spontaneous
  Country: CA (occurrence: CA)
  Receive Date: 20210820
  Receipt Date: 20210820
  Transmission Date: 20211014
  Serious: Yes (Other)
  Sender: FDA-Public Use
  Company Number: CA-ROCHE-2891062

PATIENT
  Sex: Female
  Weight: 81 kg

DRUGS (28)
  1. CHLORAPREP ONE?STEP [Suspect]
     Active Substance: CHLORHEXIDINE GLUCONATE\ISOPROPYL ALCOHOL
     Indication: PRODUCT USED FOR UNKNOWN INDICATION
     Route: 061
  2. TYLENOL [Concomitant]
     Active Substance: ACETAMINOPHEN
  3. PERIOGARD [Suspect]
     Active Substance: CHLORHEXIDINE GLUCONATE
     Indication: PRODUCT USED FOR UNKNOWN INDICATION
     Route: 065
  4. PLAQUENIL [Concomitant]
     Active Substance: HYDROXYCHLOROQUINE SULFATE
  5. ZOPICLONE [Concomitant]
     Active Substance: ZOPICLONE
  6. ACETAMINOPHEN. [Suspect]
     Active Substance: ACETAMINOPHEN
     Indication: PRODUCT USED FOR UNKNOWN INDICATION
     Route: 065
  7. CIMZIA [Suspect]
     Active Substance: CERTOLIZUMAB PEGOL
     Route: 058
  8. OXYCODONE TEREPHTHALATE [Suspect]
     Active Substance: OXYCODONE TEREPHTHALATE
     Indication: PRODUCT USED FOR UNKNOWN INDICATION
     Route: 065
  9. PANTOPRAZOLE [Concomitant]
     Active Substance: PANTOPRAZOLE
  10. UBIDECARENONE. [Concomitant]
     Active Substance: UBIDECARENONE
  11. LEFLUNOMIDE. [Suspect]
     Active Substance: LEFLUNOMIDE
     Indication: PRODUCT USED FOR UNKNOWN INDICATION
     Route: 065
  12. ORENCIA [Suspect]
     Active Substance: ABATACEPT
     Indication: PRODUCT USED FOR UNKNOWN INDICATION
     Route: 065
  13. SULFAMETHOXAZOLE AND TRIMETHOPRIM [Suspect]
     Active Substance: SULFAMETHOXAZOLE\TRIMETHOPRIM
     Indication: PRODUCT USED FOR UNKNOWN INDICATION
     Route: 065
  14. PREDNISONE. [Concomitant]
     Active Substance: PREDNISONE
  15. VITAMIN C [Concomitant]
     Active Substance: ASCORBIC ACID
  16. SIMPONI [Suspect]
     Active Substance: GOLIMUMAB
     Indication: PRODUCT USED FOR UNKNOWN INDICATION
     Route: 058
  17. FISH OIL [Concomitant]
     Active Substance: FISH OIL
  18. SALBUTAMOL [Concomitant]
     Active Substance: ALBUTEROL
  19. ACTEMRA [Suspect]
     Active Substance: TOCILIZUMAB
     Indication: PRODUCT USED FOR UNKNOWN INDICATION
     Route: 065
  20. ARAVA [Suspect]
     Active Substance: LEFLUNOMIDE
     Indication: PRODUCT USED FOR UNKNOWN INDICATION
     Route: 065
  21. CIMZIA [Suspect]
     Active Substance: CERTOLIZUMAB PEGOL
     Indication: RHEUMATOID ARTHRITIS
     Route: 058
  22. ENBREL [Suspect]
     Active Substance: ETANERCEPT
     Indication: RHEUMATOID ARTHRITIS
     Route: 058
  23. CHOLECALCIFEROL [Concomitant]
     Active Substance: CHOLECALCIFEROL
  24. DESOGESTREL;ETHINYLESTRADIOL [Concomitant]
     Active Substance: DESOGESTREL\ETHINYL ESTRADIOL
  25. IBUPROFEN. [Concomitant]
     Active Substance: IBUPROFEN
  26. ONE ALPHA [Concomitant]
     Active Substance: ALFACALCIDOL
  27. PANTOLOC [Concomitant]
     Active Substance: PANTOPRAZOLE SODIUM
  28. METHOTREXATE. [Suspect]
     Active Substance: METHOTREXATE
     Indication: PRODUCT USED FOR UNKNOWN INDICATION
     Route: 065

REACTIONS (20)
  - Muscle spasticity [Unknown]
  - Pruritus [Unknown]
  - Lower respiratory tract infection [Unknown]
  - Pain [Unknown]
  - Respiratory disorder [Unknown]
  - Vomiting [Unknown]
  - Abdominal pain upper [Unknown]
  - Asthenia [Unknown]
  - Diarrhoea [Unknown]
  - Night sweats [Unknown]
  - Peripheral swelling [Unknown]
  - Rash [Unknown]
  - Sinusitis [Unknown]
  - Ear pain [Unknown]
  - Urticaria [Unknown]
  - Body temperature increased [Unknown]
  - Joint swelling [Unknown]
  - Back pain [Unknown]
  - Headache [Unknown]
  - Insomnia [Unknown]
